FAERS Safety Report 7112329-7 (Version None)
Quarter: 2010Q4

REPORT INFORMATION
  Report Type: 
  Country: None (occurrence: None)
  Receive Date: 20101119
  Receipt Date: 20100917
  Transmission Date: 20110411
  Serious: No
  Sender: FDA-Public Use
  Company Number: A0872119A

PATIENT
  Age: 94 Year
  Sex: Male

DRUGS (4)
  1. AVODART [Suspect]
     Indication: BENIGN PROSTATIC HYPERPLASIA
     Dosage: 1CAP PER DAY
     Route: 048
     Dates: start: 20100601
  2. FLOMAX [Suspect]
     Route: 065
     Dates: end: 20100601
  3. LIPITOR [Concomitant]
  4. ASPIRIN [Concomitant]

REACTIONS (8)
  - ALOPECIA [None]
  - DISCOMFORT [None]
  - DRUG INTERACTION [None]
  - EYE DISCHARGE [None]
  - EYE SWELLING [None]
  - EYELID PTOSIS [None]
  - PAIN OF SKIN [None]
  - PYREXIA [None]
